FAERS Safety Report 7452737 (Version 3)
Quarter: 2012Q4

REPORT INFORMATION
  Report Type: 
  Country: US (occurrence: US)
  Receive Date: 20100702
  Receipt Date: 20120829
  Transmission Date: 20130627
  Serious: Yes (Hospitalization, Other)
  Sender: FDA-Public Use
  Company Number: US-BAYER-201026406NA

PATIENT
  Age: 34 Year
  Sex: Female
  Weight: 72.73 kg

DRUGS (10)
  1. YAZ [Suspect]
     Indication: PREMENSTRUAL SYNDROME
     Dosage: UNK
     Route: 048
     Dates: start: 20090304, end: 20090618
  2. HYDROCODONE [Concomitant]
     Dates: start: 2005
  3. VITAMIN C [Concomitant]
     Dosage: 1000 mg (Daily Dose), QD,
     Dates: start: 2005
  4. TYLENOL [PARACETAMOL] [Concomitant]
     Indication: HEADACHE
  5. EXCEDRIN IB [Concomitant]
     Indication: HEADACHE
  6. ADVIL [Concomitant]
     Indication: HEADACHE
  7. SUPER B COMPLEX [Concomitant]
  8. BIOTIN [Concomitant]
  9. CENTRUM [Concomitant]
  10. CALCIUM [Concomitant]

REACTIONS (5)
  - Pulmonary embolism [Unknown]
  - Chest pain [Unknown]
  - Pleuritic pain [Unknown]
  - Dyspnoea [Unknown]
  - Cerebrovascular accident [Unknown]
